FAERS Safety Report 25777816 (Version 1)
Quarter: 2025Q3

REPORT INFORMATION
  Report Type: Spontaneous
  Country: US (occurrence: None)
  Receive Date: 20250908
  Receipt Date: 20250908
  Transmission Date: 20251020
  Serious: Yes (Other)
  Sender: FDA-CTU
  Company Number: None

PATIENT
  Age: 73 Year
  Sex: Female

DRUGS (1)
  1. TICE BCG [Suspect]
     Active Substance: BACILLUS CALMETTE-GUERIN SUBSTRAIN TICE LIVE ANTIGEN

REACTIONS (14)
  - Drug intolerance [None]
  - Weight decreased [None]
  - Rectal haemorrhage [None]
  - Asthenia [None]
  - Feeding disorder [None]
  - Depression [None]
  - Metastatic neoplasm [None]
  - Transitional cell carcinoma recurrent [None]
  - Aortic dissection [None]
  - Mycobacterium avium complex infection [None]
  - Aspiration [None]
  - Klebsiella urinary tract infection [None]
  - Lung opacity [None]
  - Nephrolithiasis [None]

NARRATIVE: CASE EVENT DATE: 20200920
